FAERS Safety Report 7346672-3 (Version None)
Quarter: 2011Q1

REPORT INFORMATION
  Report Type: 
  Country: None (occurrence: None)
  Receive Date: 20110311
  Receipt Date: 20110302
  Transmission Date: 20110831
  Serious: Yes (Life-Threatening)
  Sender: FDA-Public Use
  Company Number: FR-CUBIST-2011S1000150

PATIENT
  Age: 67 Year
  Sex: Male
  Weight: 102 kg

DRUGS (5)
  1. AMOXICILLIN [Concomitant]
     Route: 065
     Dates: start: 20101203
  2. CUBICIN [Suspect]
     Indication: PRODUCT USED FOR UNKNOWN INDICATION
     Route: 042
     Dates: start: 20101203
  3. GENTAMICIN [Concomitant]
     Route: 065
     Dates: start: 20101203
  4. HYDROCORTISONE [Concomitant]
     Route: 065
     Dates: start: 20101126
  5. VANCOMYCIN [Concomitant]
     Route: 065

REACTIONS (4)
  - ELECTROCARDIOGRAM QT PROLONGED [None]
  - CARDIAC ARREST [None]
  - HYPOKALAEMIA [None]
  - VENTRICULAR FIBRILLATION [None]
